FAERS Safety Report 6076205-3 (Version None)
Quarter: 2009Q1

REPORT INFORMATION
  Report Type: 
  Country: None (occurrence: None)
  Receive Date: 20090212
  Receipt Date: 20081230
  Transmission Date: 20090719
  Serious: Yes (Other)
  Sender: FDA-Public Use
  Company Number: US-PFIZER INC-2009150511

PATIENT
  Sex: Female
  Weight: 92.986 kg

DRUGS (4)
  1. CHANTIX [Suspect]
     Indication: SMOKING CESSATION THERAPY
     Dates: start: 20080801, end: 20080801
  2. MOBIC [Concomitant]
     Indication: INTERVERTEBRAL DISC PROTRUSION
     Dosage: UNK
  3. LEXAPRO [Concomitant]
     Indication: PAIN IN EXTREMITY
     Dosage: UNK
  4. LEXAPRO [Concomitant]
     Indication: BACK PAIN

REACTIONS (1)
  - PRESYNCOPE [None]
